FAERS Safety Report 7063172-9 (Version None)
Quarter: 2010Q4

REPORT INFORMATION
  Report Type: 
  Country: None (occurrence: None)
  Receive Date: 20101026
  Receipt Date: 20100503
  Transmission Date: 20110411
  Serious: No
  Sender: FDA-Public Use
  Company Number: US-PFIZER INC-2010056356

PATIENT
  Sex: Male
  Weight: 85.261 kg

DRUGS (3)
  1. LIPITOR [Suspect]
     Indication: BLOOD CHOLESTEROL INCREASED
     Dosage: 20 MG, UNK
     Route: 048
     Dates: start: 20020101
  2. LIPITOR [Suspect]
     Dosage: 40 MG, UNK
     Route: 048
     Dates: end: 20100401
  3. ACETYLSALICYLIC ACID [Concomitant]
     Indication: CARDIAC DISORDER
     Dosage: 2.5 MG, 3X/DAY
     Route: 048

REACTIONS (1)
  - MYALGIA [None]
